FAERS Safety Report 15539464 (Version 1)
Quarter: 2018Q4

REPORT INFORMATION
  Report Type: Spontaneous
  Country: GB (occurrence: GB)
  Receive Date: 20181023
  Receipt Date: 20181023
  Transmission Date: 20190205
  Serious: Yes (Other)
  Sender: FDA-Public Use
  Company Number: GB-TEVA-2018-GB-967612

PATIENT
  Age: 10 Year
  Sex: Male

DRUGS (2)
  1. CIRCADIN [Concomitant]
     Active Substance: MELATONIN
     Route: 065
  2. TEVA UK LAMOTRIGINE [Suspect]
     Active Substance: LAMOTRIGINE
     Indication: EPILEPSY
     Route: 048

REACTIONS (4)
  - Product substitution issue [Unknown]
  - Confusional state [Recovered/Resolved]
  - Disorganised speech [Recovered/Resolved]
  - Disorientation [Recovered/Resolved]
